FAERS Safety Report 17933249 (Version 2)
Quarter: 2021Q2

REPORT INFORMATION
  Report Type: Spontaneous
  Country: US (occurrence: US)
  Receive Date: 20200623
  Receipt Date: 20210629
  Transmission Date: 20210717
  Serious: Yes (Other)
  Sender: FDA-Public Use
  Company Number: US-TEVA-2020-US-1790228

PATIENT
  Age: 4 Decade
  Sex: Female

DRUGS (8)
  1. ALPRAZOLAM. [Suspect]
     Active Substance: ALPRAZOLAM
     Indication: INSOMNIA
     Dosage: .5 MILLIGRAM DAILY;
     Route: 065
  2. QUETIAPINE. [Suspect]
     Active Substance: QUETIAPINE
     Dosage: DOSE: 25MG TO 50MG
     Route: 065
  3. CITALOPRAM [Suspect]
     Active Substance: CITALOPRAM HYDROBROMIDE
     Indication: ANTIDEPRESSANT THERAPY
     Dosage: 20 MILLIGRAM DAILY;
     Route: 065
     Dates: start: 2005
  4. LEVOTHYROXINE. [Concomitant]
     Active Substance: LEVOTHYROXINE
     Dosage: DOSE: 0.05MG TO 0.1 MG
     Route: 065
  5. LITHIUM. [Suspect]
     Active Substance: LITHIUM
     Dosage: 300MG 3?4 TIMES DAILY ADMINISTERED 3 TO 4 TIMES
     Route: 065
     Dates: start: 201308
  6. ZOPICLONE [Suspect]
     Active Substance: ZOPICLONE
     Indication: INSOMNIA
     Dosage: 7.5 MILLIGRAM DAILY;
     Route: 065
  7. CITALOPRAM [Suspect]
     Active Substance: CITALOPRAM HYDROBROMIDE
     Route: 065
  8. QUETIAPINE. [Suspect]
     Active Substance: QUETIAPINE
     Dosage: ADMINISTERED ONCE OR TWICE DAILY
     Route: 065

REACTIONS (8)
  - Weight increased [Unknown]
  - Hypothyroidism [Recovered/Resolved]
  - Withdrawal syndrome [Recovering/Resolving]
  - Insomnia [Recovered/Resolved]
  - Restless legs syndrome [Not Recovered/Not Resolved]
  - Pain in extremity [Recovered/Resolved]
  - Electric shock sensation [Recovered/Resolved]
  - Cognitive disorder [Recovered/Resolved]
